FAERS Safety Report 5761422-X (Version None)
Quarter: 2008Q2

REPORT INFORMATION
  Report Type: 
  Country: None (occurrence: None)
  Receive Date: 20080606
  Receipt Date: 20080527
  Transmission Date: 20081010
  Serious: Yes (Life-Threatening, Hospitalization)
  Sender: FDA-Public Use
  Company Number: KR-ABBOTT-08P-090-0453736-00

PATIENT
  Sex: Male

DRUGS (12)
  1. ZEMPLAR [Suspect]
     Indication: HYPERPARATHYROIDISM SECONDARY
     Route: 051
     Dates: start: 20080110, end: 20080410
  2. NICORANDIL [Concomitant]
     Indication: ANGINA PECTORIS
     Route: 048
     Dates: start: 20070508
  3. TRAZODONE HCL [Concomitant]
     Indication: ANTIDEPRESSANT THERAPY
     Route: 048
     Dates: start: 20070508
  4. GLIMEPIRIDE [Concomitant]
     Indication: DIABETES MELLITUS
     Route: 048
     Dates: start: 20070508
  5. ASPIRIN [Concomitant]
     Indication: PROPHYLAXIS
     Route: 048
     Dates: start: 20070508
  6. HEMOCONTIN [Concomitant]
     Indication: MEDICAL DIET
     Dosage: 1 TABLE DAILY
     Route: 048
     Dates: start: 20070508
  7. ISOSORBIDE DINITRATE [Concomitant]
     Indication: PROPHYLAXIS
     Route: 048
     Dates: start: 20070508
  8. CALCIUM ACETATE [Concomitant]
     Indication: PHOSPHORUS METABOLISM DISORDER
     Route: 048
     Dates: start: 20070508
  9. ACETYL-L CARNITINE [Concomitant]
     Indication: VITAMIN SUPPLEMENTATION
     Route: 048
     Dates: start: 20070508
  10. ASCORBIC ACID [Concomitant]
     Indication: HYPOVITAMINOSIS
     Route: 048
     Dates: start: 20070508
  11. PROPAFENONE HCL [Concomitant]
     Indication: ARRHYTHMIA PROPHYLAXIS
     Route: 048
     Dates: start: 20070508
  12. TRIMETAZIDINE HYDROCHLORIDE [Concomitant]
     Indication: SHOCK
     Route: 048
     Dates: start: 20070508

REACTIONS (3)
  - ATRIAL FLUTTER [None]
  - CHEST PAIN [None]
  - MYOCARDIAL INFARCTION [None]
